FAERS Safety Report 6808826-1 (Version None)
Quarter: 2010Q2

REPORT INFORMATION
  Report Type: 
  Country: None (occurrence: None)
  Receive Date: 20100630
  Receipt Date: 20091020
  Transmission Date: 20101027
  Serious: No
  Sender: FDA-Public Use
  Company Number: US-PFIZER INC-2009253435

PATIENT
  Sex: Male
  Weight: 118 kg

DRUGS (7)
  1. TIKOSYN [Suspect]
     Indication: ATRIAL FIBRILLATION
     Dosage: 500 UG, 2X/DAY
     Dates: start: 20090701
  2. CRESTOR [Suspect]
     Dosage: UNK
  3. CUMADIN [Concomitant]
     Dosage: UNK
  4. CELEBREX [Concomitant]
     Dosage: UNK
  5. ASPIRINE [Concomitant]
     Dosage: 81 MG, UNK
  6. MULTI-VITAMINS [Concomitant]
     Dosage: UNK
  7. OSTEO BI-FLEX [Concomitant]
     Dosage: UNK

REACTIONS (2)
  - INTERNATIONAL NORMALISED RATIO DECREASED [None]
  - MUSCLE SPASMS [None]
